FAERS Safety Report 4336234-4 (Version None)
Quarter: 2004Q2

REPORT INFORMATION
  Report Type: 
  Country: None (occurrence: None)
  Receive Date: 20040407
  Receipt Date: 20040324
  Transmission Date: 20050107
  Serious: Yes (Death, Hospitalization)
  Sender: FDA-Public Use
  Company Number: GBT031201103

PATIENT
  Age: 56 Year
  Sex: Male
  Weight: 68 kg

DRUGS (6)
  1. PEMETREXED [Suspect]
     Indication: MESOTHELIOMA
     Dosage: 400 MG/M2/2 OTHER
     Route: 050
     Dates: start: 20031110
  2. DOCETAXEL [Suspect]
     Indication: MESOTHELIOMA
     Dosage: 30 MG/M2/1 OTHER
     Route: 050
     Dates: start: 20031117
  3. ACETAMINOPHEN [Concomitant]
  4. DF118 [Concomitant]
  5. VITAMIN B-12 [Concomitant]
  6. FOLIC ACID [Concomitant]

REACTIONS (11)
  - ATRIAL FIBRILLATION [None]
  - BRONCHOPNEUMONIA [None]
  - HYPERKALAEMIA [None]
  - MALIGNANT NEOPLASM PROGRESSION [None]
  - MESOTHELIOMA [None]
  - NAUSEA [None]
  - PAIN [None]
  - PERICARDIAL EFFUSION [None]
  - PERICARDITIS [None]
  - PLEURAL EFFUSION [None]
  - PULMONARY EMBOLISM [None]
